FAERS Safety Report 6721471-1 (Version None)
Quarter: 2010Q2

REPORT INFORMATION
  Report Type: 
  Country: None (occurrence: None)
  Receive Date: 20100512
  Receipt Date: 20100503
  Transmission Date: 20101027
  Serious: Yes (Hospitalization)
  Sender: FDA-Public Use
  Company Number: BR-GENZYME-CLOF-1000932

PATIENT
  Age: 11 Year
  Sex: Male

DRUGS (2)
  1. CLOLAR [Suspect]
     Indication: ACUTE LYMPHOCYTIC LEUKAEMIA
     Dosage: 60 MG, QD
     Route: 042
     Dates: start: 20100408, end: 20100411
  2. CLOLAR [Suspect]
     Dosage: 40 MG, ONCE
     Route: 042
     Dates: start: 20100412, end: 20100412

REACTIONS (7)
  - CARDIOMEGALY [None]
  - LUNG INFILTRATION [None]
  - NEUTROPENIA [None]
  - PAIN [None]
  - PNEUMONIA [None]
  - PULMONARY OEDEMA [None]
  - RESPIRATORY DISORDER [None]
